FAERS Safety Report 5016742-3 (Version None)
Quarter: 2006Q2

REPORT INFORMATION
  Report Type: 
  Country: None (occurrence: None)
  Receive Date: 20060602
  Receipt Date: 20060307
  Transmission Date: 20061013
  Serious: No
  Sender: FDA-Public Use
  Company Number: US-GLAXOSMITHKLINE-A0596513A

PATIENT
  Age: 6 Year
  Sex: Female
  Weight: 31.8 kg

DRUGS (3)
  1. AUGMENTIN '125' [Suspect]
     Indication: SINUSITIS
     Route: 048
     Dates: start: 20060213, end: 20060215
  2. CEFTIN [Suspect]
     Indication: TONSILLITIS
     Dosage: 250MG TWICE PER DAY
     Route: 048
     Dates: start: 20060218, end: 20060220
  3. ZYRTEC [Concomitant]

REACTIONS (4)
  - DIARRHOEA [None]
  - DYSGEUSIA [None]
  - RETCHING [None]
  - VOMITING [None]
